FAERS Safety Report 7743495-8 (Version None)
Quarter: 2011Q3

REPORT INFORMATION
  Report Type: 
  Country: None (occurrence: None)
  Receive Date: 20110912
  Receipt Date: 20101209
  Transmission Date: 20111222
  Serious: No
  Sender: FDA-Public Use
  Company Number: US-ABBOTT-10P-163-0690641-00

PATIENT
  Age: 29 Year
  Sex: Female

DRUGS (2)
  1. DEPAKOTE [Suspect]
     Indication: ABNORMAL BEHAVIOUR
  2. DEPAKOTE [Suspect]
     Indication: AFFECTIVE DISORDER
     Dosage: AT BEDTIME
     Route: 048
     Dates: start: 20101101

REACTIONS (1)
  - MENSTRUATION DELAYED [None]
